FAERS Safety Report 8286838-1 (Version None)
Quarter: 2012Q2

REPORT INFORMATION
  Report Type: 
  Country: None (occurrence: None)
  Receive Date: 20120416
  Receipt Date: 20120403
  Transmission Date: 20120825
  Serious: Yes (Other)
  Sender: FDA-Public Use
  Company Number: US-ELI_LILLY_AND_COMPANY-US201202005821

PATIENT
  Age: 36 Year
  Sex: Female
  Weight: 79.365 kg

DRUGS (16)
  1. PHENERGAN HCL [Concomitant]
     Dosage: 25 MG, BID
  2. ESTRACE [Concomitant]
     Dosage: 2 MG, QD
  3. CYMBALTA [Suspect]
     Dosage: 60 MG, UNKNOWN
     Route: 048
     Dates: start: 20111017, end: 20111227
  4. AMBIEN [Concomitant]
     Dosage: 10 MG, EACH EVENING
  5. SILVER SULFADIAZINE [Concomitant]
     Route: 061
  6. TENEX [Concomitant]
     Dosage: 1 MG, BID
  7. MEDROL [Concomitant]
     Dosage: 4 MG, UNK
  8. CYMBALTA [Suspect]
     Dosage: 120 MG, UNKNOWN
     Route: 048
     Dates: start: 20111227, end: 20111228
  9. ADDERALL 5 [Concomitant]
     Dosage: 30 MG, TID
  10. VALIUM [Concomitant]
     Dosage: 10 MG, TID
  11. PROVENTIL                               /USA/ [Concomitant]
     Dosage: 90 UG, EVERY 4 HRS
     Route: 055
  12. CYMBALTA [Suspect]
     Indication: MAJOR DEPRESSION
     Dosage: 30 MG, UNKNOWN
     Route: 048
     Dates: end: 20111016
  13. NEURONTIN                               /USA/ [Concomitant]
     Dosage: 300 MG, TID
  14. DIFLUCAN [Concomitant]
     Dosage: 150 MG, QD
  15. SYMBICORT [Concomitant]
     Dosage: 1 DF, BID
     Route: 055
  16. INDOCIN [Concomitant]
     Dosage: 75 MG, BID

REACTIONS (2)
  - STEVENS-JOHNSON SYNDROME [None]
  - COMPLEX REGIONAL PAIN SYNDROME [None]
